FAERS Safety Report 15524702 (Version 1)
Quarter: 2018Q4

REPORT INFORMATION
  Report Type: Spontaneous
  Country: US (occurrence: US)
  Receive Date: 20181018
  Receipt Date: 20181018
  Transmission Date: 20190205
  Serious: No
  Sender: FDA-Public Use
  Company Number: US-PFIZER INC-2018416578

PATIENT
  Age: 8 Decade
  Sex: Male

DRUGS (2)
  1. LYRICA [Suspect]
     Active Substance: PREGABALIN
     Dosage: UNK, AS NEEDED
  2. LYRICA [Suspect]
     Active Substance: PREGABALIN
     Dosage: 75 MG, 4X/DAY (4 CAPSULES A DAY)

REACTIONS (7)
  - Depression [Unknown]
  - Balance disorder [Unknown]
  - Lethargy [Unknown]
  - Intentional product misuse [Unknown]
  - Fatigue [Unknown]
  - Insomnia [Unknown]
  - Hypersomnia [Unknown]
